FAERS Safety Report 9011490 (Version 1)
Quarter: 2013Q1

REPORT INFORMATION
  Report Type: Spontaneous
  Country: GB (occurrence: GB)
  Receive Date: 20130108
  Receipt Date: 20130108
  Transmission Date: 20140127
  Serious: Yes (Hospitalization, Other)
  Sender: FDA-Public Use
  Company Number: PHFR2012GB005982

PATIENT
  Age: 47 Year
  Sex: Female

DRUGS (3)
  1. CLOZARIL [Suspect]
     Indication: SCHIZOPHRENIA
     Dosage: 200 MG, QD
     Route: 048
     Dates: start: 20121015, end: 20121113
  2. VENLAFAXINE [Concomitant]
     Dosage: 75 MG, QD
     Route: 048
     Dates: start: 20110825
  3. VENLAFAXINE [Concomitant]
     Dosage: 112.5 MG, QD
     Route: 048

REACTIONS (3)
  - Sepsis [Unknown]
  - C-reactive protein increased [Unknown]
  - Acute hepatic failure [Recovering/Resolving]
